FAERS Safety Report 23684371 (Version 1)
Quarter: 2024Q1

REPORT INFORMATION
  Report Type: Spontaneous
  Country: US (occurrence: US)
  Receive Date: 20240328
  Receipt Date: 20240328
  Transmission Date: 20240410
  Serious: No
  Sender: FDA-Public Use
  Company Number: US-Evolus, Inc.-2023EV000311

PATIENT
  Age: 40 Year
  Sex: Female

DRUGS (2)
  1. JEUVEAU [Suspect]
     Active Substance: PRABOTULINUMTOXINA-XVFS
     Indication: Skin wrinkling
     Dosage: 12 UNITS IN GLABELLA, 8 UNITS TO NASALIS
     Dates: start: 20230812, end: 20230812
  2. JEUVEAU [Suspect]
     Active Substance: PRABOTULINUMTOXINA-XVFS
     Indication: Product used for unknown indication
     Dosage: 12 UNITS IN GLABELLA, 8 UNITS IN NASALIS
     Dates: start: 20230831, end: 20230831

REACTIONS (2)
  - Drug effect less than expected [Unknown]
  - Off label use [Unknown]
